FAERS Safety Report 8457138-1 (Version None)
Quarter: 2012Q2

REPORT INFORMATION
  Report Type: 
  Country: None (occurrence: None)
  Receive Date: 20120621
  Receipt Date: 20120613
  Transmission Date: 20120825
  Serious: Yes (Hospitalization, Other)
  Sender: FDA-Public Use
  Company Number: JP-ABBOTT-12P-087-0900314-00

PATIENT
  Sex: Male
  Weight: 40 kg

DRUGS (12)
  1. OXYCODONE HCL [Concomitant]
     Dates: start: 20120124
  2. FUROSEMIDE [Concomitant]
     Indication: ASCITES
     Route: 048
  3. SPIRONOLACTONE [Concomitant]
     Indication: ASCITES
     Route: 048
  4. LIPACREON [Suspect]
     Indication: PANCREATITIS CHRONIC
     Route: 048
     Dates: start: 20120105, end: 20120127
  5. CAMOSTAT MESILATE [Concomitant]
     Indication: PANCREATITIS CHRONIC
     Route: 048
  6. OXYCODONE HYDROCHLORIDE [Concomitant]
     Dates: start: 20120124
  7. OPIOIDS [Concomitant]
     Indication: ANALGESIC THERAPY
  8. OXYCODONE HCL [Concomitant]
     Indication: CANCER PAIN
     Dates: start: 20110819
  9. FLOPROPIONE [Concomitant]
     Indication: PANCREATITIS CHRONIC
     Route: 048
  10. BROTIZOLAM [Concomitant]
     Indication: INSOMNIA
     Route: 048
  11. REBAMIPIDE [Concomitant]
     Indication: PANCREATITIS CHRONIC
     Route: 048
  12. OXYCODONE HYDROCHLORIDE [Concomitant]
     Indication: CANCER PAIN
     Dosage: 10 MG AT THE TIME OF PAIN

REACTIONS (10)
  - DECREASED APPETITE [None]
  - NAUSEA [None]
  - LIVER DISORDER [None]
  - BLOOD ALKALINE PHOSPHATASE INCREASED [None]
  - GAMMA-GLUTAMYLTRANSFERASE INCREASED [None]
  - ASPARTATE AMINOTRANSFERASE INCREASED [None]
  - WHITE BLOOD CELL COUNT INCREASED [None]
  - VOMITING [None]
  - ABDOMINAL PAIN [None]
  - ALANINE AMINOTRANSFERASE INCREASED [None]
